FAERS Safety Report 24874740 (Version 1)
Quarter: 2025Q1

REPORT INFORMATION
  Report Type: Spontaneous
  Country: US (occurrence: None)
  Receive Date: 20250122
  Receipt Date: 20250122
  Transmission Date: 20250408
  Serious: No
  Sender: FDA-CTU
  Company Number: None

PATIENT

DRUGS (2)
  1. IBRANCE [Suspect]
     Active Substance: PALBOCICLIB
  2. FASLODEX [Suspect]
     Active Substance: FULVESTRANT

REACTIONS (10)
  - Pain [None]
  - Fatigue [None]
  - Fatigue [None]
  - Nausea [None]
  - Vomiting [None]
  - Decreased appetite [None]
  - Diarrhoea [None]
  - Anxiety [None]
  - Blood sodium decreased [None]
  - Gastric neoplasm [None]
